FAERS Safety Report 7769837-5 (Version None)
Quarter: 2011Q3

REPORT INFORMATION
  Report Type: 
  Country: None (occurrence: None)
  Receive Date: 20110922
  Receipt Date: 20110125
  Transmission Date: 20111222
  Serious: No
  Sender: FDA-Public Use
  Company Number: US-ASTRAZENECA-2011SE04689

PATIENT
  Age: 39 Year
  Sex: Female

DRUGS (10)
  1. ZOLOFT [Concomitant]
  2. TOPAMAX [Concomitant]
     Indication: MIGRAINE
  3. TRAMADOL HCL [Concomitant]
  4. SEROQUEL [Suspect]
     Indication: BIPOLAR DISORDER
     Route: 048
     Dates: start: 20090101
  5. LISINOPRIL [Concomitant]
     Indication: HYPERTENSION
     Dates: start: 20100601
  6. DEPAKOTE [Concomitant]
  7. PROTONIX [Concomitant]
  8. TRAZODONE HCL [Concomitant]
  9. SEROQUEL [Suspect]
     Route: 048
  10. NEURONTIN [Concomitant]

REACTIONS (4)
  - DYSPNOEA [None]
  - ANXIETY [None]
  - DRUG DOSE OMISSION [None]
  - WEIGHT INCREASED [None]
